FAERS Safety Report 12615903 (Version 2)
Quarter: 2018Q1

REPORT INFORMATION
  Report Type: Spontaneous
  Country: US (occurrence: US)
  Receive Date: 20160802
  Receipt Date: 20180309
  Transmission Date: 20180508
  Serious: Yes (Hospitalization, Disabling)
  Sender: FDA-Public Use
  Company Number: US-ENDO PHARMACEUTICALS INC.-2016-002605

PATIENT
  Age: 59 Year
  Sex: Male
  Weight: 140.59 kg

DRUGS (18)
  1. TESTOPEL [Suspect]
     Active Substance: TESTOSTERONE
     Route: 058
     Dates: start: 20130221
  2. LANTUS [Concomitant]
     Active Substance: INSULIN GLARGINE
     Indication: DIABETES MELLITUS
     Dosage: UNK UNKNOWN, UNKNOWN
     Route: 065
     Dates: start: 2008
  3. NOVOLOG [Concomitant]
     Active Substance: INSULIN ASPART
     Indication: DIABETES MELLITUS
     Dosage: UNK UNKNOWN, UNKNOWN
     Route: 065
     Dates: start: 2008
  4. NARCO [Concomitant]
     Route: 065
     Dates: start: 2010
  5. TESTOPEL [Suspect]
     Active Substance: TESTOSTERONE
     Route: 058
     Dates: start: 20130625
  6. TESTOPEL [Suspect]
     Active Substance: TESTOSTERONE
     Route: 058
     Dates: start: 20120920
  7. NOVOLOG [Concomitant]
     Active Substance: INSULIN ASPART
     Route: 065
     Dates: start: 2008
  8. TESTOPEL [Suspect]
     Active Substance: TESTOSTERONE
     Route: 058
     Dates: start: 20140715
  9. LANTUS [Concomitant]
     Active Substance: INSULIN GLARGINE
     Route: 065
     Dates: start: 2008
  10. TESTOPEL [Suspect]
     Active Substance: TESTOSTERONE
     Indication: ANDROGEN REPLACEMENT THERAPY
     Dosage: UNK UNKNOWN, EVERY 6 MONTHS
     Route: 058
     Dates: start: 20120515, end: 201411
  11. METFORMIN [Concomitant]
     Active Substance: METFORMIN HYDROCHLORIDE
     Indication: DIABETES MELLITUS
     Dosage: UNK UNKNOWN, UNKNOWN
     Route: 065
     Dates: start: 2007
  12. TRAZODONE [Concomitant]
     Active Substance: TRAZODONE HYDROCHLORIDE
     Indication: SLEEP DISORDER
     Dosage: UNK UNKNOWN, UNKNOWN
     Route: 065
     Dates: start: 2008
  13. TESTOPEL [Suspect]
     Active Substance: TESTOSTERONE
     Route: 058
     Dates: start: 20140305
  14. TESTOPEL [Suspect]
     Active Substance: TESTOSTERONE
     Route: 058
     Dates: start: 20131105
  15. TRAZODONE [Concomitant]
     Active Substance: TRAZODONE HYDROCHLORIDE
     Indication: DEPRESSION
     Route: 065
     Dates: start: 2008
  16. TESTIM [Suspect]
     Active Substance: TESTOSTERONE
     Indication: ANDROGEN REPLACEMENT THERAPY
     Dosage: UNK UNKNOWN, DAILY
     Route: 062
     Dates: start: 201109, end: 201110
  17. AXIRON [Suspect]
     Active Substance: TESTOSTERONE
     Indication: ANDROGEN REPLACEMENT THERAPY
     Dosage: UNK UNKNOWN, DAILY
     Route: 065
     Dates: start: 20111101, end: 20120514
  18. NARCO [Concomitant]
     Indication: PAIN
     Dosage: UNK UNKNOWN, UNKNOWN
     Route: 065
     Dates: start: 2008

REACTIONS (3)
  - Deep vein thrombosis [Not Recovered/Not Resolved]
  - Thrombophlebitis superficial [Not Recovered/Not Resolved]
  - Pulmonary embolism [Not Recovered/Not Resolved]

NARRATIVE: CASE EVENT DATE: 20140830
